FAERS Safety Report 6071013-1 (Version None)
Quarter: 2009Q1

REPORT INFORMATION
  Report Type: 
  Country: None (occurrence: None)
  Receive Date: 20090209
  Receipt Date: 20090128
  Transmission Date: 20090719
  Serious: Yes (Life-Threatening, Hospitalization)
  Sender: FDA-Public Use
  Company Number: B0556376A

PATIENT
  Age: 39 Year
  Sex: Female

DRUGS (7)
  1. ZIAGEN [Suspect]
     Indication: HIV INFECTION
     Route: 048
     Dates: start: 20081024, end: 20081024
  2. BACTRIM [Suspect]
     Indication: PROPHYLAXIS
     Route: 048
     Dates: start: 20081018, end: 20081023
  3. TRAMADOL HCL [Suspect]
     Dosage: 50MG PER DAY
     Route: 048
     Dates: start: 20081024, end: 20081024
  4. SEROPRAM [Concomitant]
     Route: 065
  5. INIPOMP [Concomitant]
  6. STILNOX [Concomitant]
     Route: 048
  7. LEXOMIL [Concomitant]
     Route: 048

REACTIONS (10)
  - BLOOD PRESSURE DECREASED [None]
  - CIRCULATORY COLLAPSE [None]
  - DIARRHOEA [None]
  - HYPERSENSITIVITY [None]
  - LACTIC ACIDOSIS [None]
  - PYREXIA [None]
  - RHABDOMYOLYSIS [None]
  - SOMNOLENCE [None]
  - TRANSAMINASES INCREASED [None]
  - VOMITING [None]
